FAERS Safety Report 5330989-8 (Version None)
Quarter: 2007Q2

REPORT INFORMATION
  Report Type: 
  Country: None (occurrence: None)
  Receive Date: 20070518
  Receipt Date: 20070518
  Transmission Date: 20071010
  Serious: Yes (Other)
  Sender: FDA-Public Use
  Company Number: None

PATIENT
  Sex: Female
  Weight: 83.9154 kg

DRUGS (1)
  1. LEVAQUIN [Suspect]
     Indication: ANIMAL BITE
     Dosage: 500 MG Q 24HRS PO
     Route: 048
     Dates: start: 20070511, end: 20070517

REACTIONS (10)
  - ARTHRALGIA [None]
  - BACK PAIN [None]
  - DISTURBANCE IN ATTENTION [None]
  - DIZZINESS [None]
  - HANGOVER [None]
  - HEADACHE [None]
  - IMPAIRED DRIVING ABILITY [None]
  - IMPAIRED WORK ABILITY [None]
  - LETHARGY [None]
  - TENDON PAIN [None]
